FAERS Safety Report 20813798 (Version 1)
Quarter: 2022Q2

REPORT INFORMATION
  Report Type: Spontaneous
  Country: TR (occurrence: TR)
  Receive Date: 20220511
  Receipt Date: 20220511
  Transmission Date: 20220721
  Serious: Yes (Other)
  Sender: FDA-Public Use
  Company Number: TR-SA-2022SA156187

PATIENT
  Age: 54 Year
  Sex: Male

DRUGS (2)
  1. ENOXAPARIN SODIUM [Suspect]
     Active Substance: ENOXAPARIN SODIUM
     Indication: COVID-19
     Dosage: UNK
  2. FAVIPIRAVIR [Suspect]
     Active Substance: FAVIPIRAVIR
     Indication: COVID-19
     Dosage: UNK

REACTIONS (8)
  - Acute generalised exanthematous pustulosis [Recovered/Resolved]
  - Eosinophilic pustular folliculitis [Recovered/Resolved]
  - Pustule [Recovered/Resolved]
  - Pyrexia [Recovered/Resolved]
  - Parakeratosis [Recovered/Resolved]
  - Excessive granulation tissue [Recovered/Resolved]
  - Acanthosis [Recovered/Resolved]
  - Eczema [Recovered/Resolved]
